FAERS Safety Report 9380164 (Version 1)
Quarter: 2013Q3

REPORT INFORMATION
  Report Type: Spontaneous
  Country: US (occurrence: None)
  Receive Date: 20130701
  Receipt Date: 20130701
  Transmission Date: 20140515
  Serious: Yes (Hospitalization)
  Sender: FDA-Public Use
  Company Number: None

PATIENT
  Age: 59 Year
  Sex: Male
  Weight: 79.38 kg

DRUGS (2)
  1. VIAGRA [Suspect]
     Indication: ERECTILE DYSFUNCTION
     Dosage: 100  PRN PO
     Route: 048
     Dates: start: 20090930, end: 20100920
  2. VIAGRA [Suspect]
     Indication: ERECTILE DYSFUNCTION
     Dates: start: 20100930, end: 20110928

REACTIONS (4)
  - Small intestinal obstruction [None]
  - Gastrointestinal disorder [None]
  - Hypophagia [None]
  - Fluid intake reduced [None]
